FAERS Safety Report 5827974-6 (Version None)
Quarter: 2008Q3

REPORT INFORMATION
  Report Type: 
  Country: None (occurrence: None)
  Receive Date: 20080729
  Receipt Date: 20080717
  Transmission Date: 20090109
  Serious: Yes (Death, Hospitalization)
  Sender: FDA-Public Use
  Company Number: 236745J08USA

PATIENT
  Age: 46 Year
  Sex: Female
  Weight: 86.1834 kg

DRUGS (6)
  1. REBIF [Suspect]
     Indication: MULTIPLE SCLEROSIS
     Dosage: 44 MCG, 3 IN 1 WEEKS, SUBCUTANEOUS
     Route: 058
     Dates: start: 20020422, end: 20080701
  2. PREDNISONE (PREDNISONE /00044701/) [Concomitant]
  3. ANTIHYPERTENSIVE (ANTIHYPERTENSIVES) [Concomitant]
  4. INSULIN (INSULIN /00030501/) [Concomitant]
  5. METFORMIN HCL [Concomitant]
  6. DIABETA [Concomitant]

REACTIONS (8)
  - DECUBITUS ULCER [None]
  - DEPRESSED LEVEL OF CONSCIOUSNESS [None]
  - FUNGAL SKIN INFECTION [None]
  - FUNGUS SPUTUM TEST POSITIVE [None]
  - MULTIPLE SCLEROSIS RELAPSE [None]
  - RESPIRATORY DISORDER [None]
  - URINARY TRACT INFECTION FUNGAL [None]
  - WOUND COMPLICATION [None]
